FAERS Safety Report 4768893-6 (Version None)
Quarter: 2005Q3

REPORT INFORMATION
  Report Type: 
  Country: None (occurrence: None)
  Receive Date: 20050914
  Receipt Date: 20050830
  Transmission Date: 20060218
  Serious: Yes (Hospitalization)
  Sender: FDA-Public Use
  Company Number: 234038K05USA

PATIENT
  Sex: Female

DRUGS (1)
  1. REBIF [Suspect]
     Indication: MULTIPLE SCLEROSIS
     Dosage: 22 MCG, SUBCUTANEOUS
     Route: 058
     Dates: start: 20050720, end: 20050824

REACTIONS (4)
  - ASTHENIA [None]
  - INTESTINAL OBSTRUCTION [None]
  - PARASITIC INFECTION INTESTINAL [None]
  - PYREXIA [None]
